FAERS Safety Report 9756629 (Version 1)
Quarter: 2013Q4

REPORT INFORMATION
  Report Type: Spontaneous
  Country: FR (occurrence: FR)
  Receive Date: 20131213
  Receipt Date: 20131213
  Transmission Date: 20140711
  Serious: Yes (Hospitalization)
  Sender: FDA-Public Use
  Company Number: FR-ASTRAZENECA-2013SE89006

PATIENT
  Age: 32457 Day
  Sex: Female

DRUGS (11)
  1. INEXIUM [Suspect]
     Indication: GASTRITIS PROPHYLAXIS
     Route: 048
     Dates: start: 20131101, end: 20131103
  2. LANZOR [Suspect]
     Route: 048
     Dates: end: 20131103
  3. VOLTARENE [Suspect]
     Indication: ARTHRALGIA
     Route: 048
     Dates: start: 20131101, end: 20131103
  4. LOPRESSOR [Concomitant]
  5. KARDEGIC [Concomitant]
  6. ZESTRIL [Concomitant]
  7. TEMESTA [Concomitant]
  8. ZOCOR [Concomitant]
  9. AMLOR [Concomitant]
  10. PIASCLEDINE [Concomitant]
  11. EFFERALGAN [Concomitant]

REACTIONS (2)
  - Hallucination, visual [Recovered/Resolved]
  - Confusional state [Recovered/Resolved]
